FAERS Safety Report 13391179 (Version 1)
Quarter: 2017Q1

REPORT INFORMATION
  Report Type: Spontaneous
  Country: US (occurrence: US)
  Receive Date: 20170331
  Receipt Date: 20170331
  Transmission Date: 20170429
  Serious: No
  Sender: FDA-Public Use
  Company Number: US-GLAXOSMITHKLINE-US2017042485

PATIENT
  Age: 59 Year
  Sex: Female

DRUGS (1)
  1. NICODERM CQ [Suspect]
     Active Substance: NICOTINE
     Indication: SMOKING CESSATION THERAPY
     Dosage: 21 MG, UNK
     Route: 062
     Dates: start: 201611

REACTIONS (5)
  - Application site vesicles [Recovered/Resolved]
  - Dermatitis contact [Recovered/Resolved]
  - Rash pruritic [Recovering/Resolving]
  - Nicotine dependence [Recovered/Resolved]
  - Application site urticaria [Recovered/Resolved]
